FAERS Safety Report 8855020 (Version 1)
Quarter: 2012Q4

REPORT INFORMATION
  Report Type: 
  Country: JP (occurrence: JP)
  Receive Date: 20121023
  Receipt Date: 20121023
  Transmission Date: 20130627
  Serious: Yes (Death, Other)
  Sender: FDA-Public Use
  Company Number: PHHY2012JP093709

PATIENT
  Age: 52 Year
  Sex: Female
  Weight: 44 kg

DRUGS (3)
  1. SANDOSTATIN [Suspect]
     Indication: PROTEIN-LOSING GASTROENTEROPATHY
     Dosage: 50 ug
  2. SANDOSTATIN [Suspect]
     Dosage: 50 ug, BID
  3. SANDOSTATIN LAR [Suspect]
     Dosage: 20 mg, per month

REACTIONS (4)
  - Cardiac failure acute [Fatal]
  - Hyperglycaemia [Unknown]
  - Constipation [Unknown]
  - Oedema peripheral [Unknown]
